FAERS Safety Report 21345369 (Version 1)
Quarter: 2022Q3

REPORT INFORMATION
  Report Type: Spontaneous
  Country: US (occurrence: None)
  Receive Date: 20220916
  Receipt Date: 20220916
  Transmission Date: 20221027
  Serious: Yes (Other)
  Sender: FDA-Public Use
  Company Number: None

PATIENT
  Age: 66 Year
  Sex: Female
  Weight: 72 kg

DRUGS (5)
  1. ZOLEDRONIC ACID [Suspect]
     Active Substance: ZOLEDRONIC ACID
     Indication: Osteoporosis
     Route: 041
     Dates: start: 20220912, end: 20220912
  2. Tamoxifen 10mg [Concomitant]
  3. Candicidal 100mg [Concomitant]
  4. Calcium 600mg with VItamin D3 10mcg [Concomitant]
  5. Biotin 10mg [Concomitant]

REACTIONS (3)
  - Infusion related reaction [None]
  - Muscular weakness [None]
  - Bone pain [None]

NARRATIVE: CASE EVENT DATE: 20220912
